FAERS Safety Report 7652475-2 (Version None)
Quarter: 2011Q3

REPORT INFORMATION
  Report Type: 
  Country: None (occurrence: None)
  Receive Date: 20110803
  Receipt Date: 20110728
  Transmission Date: 20111222
  Serious: Yes (Hospitalization)
  Sender: FDA-Public Use
  Company Number: US-AMGEN-USACT2011035433

PATIENT
  Age: 73 Year
  Sex: Male

DRUGS (3)
  1. PANITUMUMAB [Suspect]
     Indication: OESOPHAGEAL CARCINOMA
     Dosage: 9 MG/KG, UNK
     Dates: start: 20110621
  2. IMODIUM [Concomitant]
     Dosage: 2 MG, UNK
  3. IRINOTECAN HYDROCHLORIDE [Concomitant]
     Indication: OESOPHAGEAL CARCINOMA
     Dosage: 125 MG/M2, UNK
     Dates: start: 20110628

REACTIONS (3)
  - RASH [None]
  - NEUTROPENIA [None]
  - DIARRHOEA [None]
